FAERS Safety Report 7568041-3 (Version None)
Quarter: 2011Q2

REPORT INFORMATION
  Report Type: 
  Country: None (occurrence: None)
  Receive Date: 20110623
  Receipt Date: 20110616
  Transmission Date: 20111010
  Serious: Yes (Hospitalization)
  Sender: FDA-Public Use
  Company Number: US-SANOFI-AVENTIS-2011SA035978

PATIENT
  Age: 61 Year
  Sex: Male
  Weight: 90.26 kg

DRUGS (15)
  1. VYTORIN [Concomitant]
     Dosage: 80/ 10 MG
  2. TADALAFIL [Concomitant]
  3. LISINOPRIL [Concomitant]
  4. HUMALOG [Concomitant]
     Dosage: AS PER SLIDING SCALE
  5. SOLOSTAR [Suspect]
     Indication: TYPE 2 DIABETES MELLITUS
  6. INSULINS AND ANALOGUES,FAST-ACTING [Suspect]
     Route: 065
  7. METFORMIN HCL [Concomitant]
  8. CARVEDILOL [Concomitant]
  9. AMBIEN [Concomitant]
     Dosage: 5-10 MG
  10. ZOLOFT [Concomitant]
  11. ACTOS [Concomitant]
  12. LANTUS [Suspect]
     Indication: TYPE 2 DIABETES MELLITUS
     Dosage: DOSE:40 UNIT(S)
     Route: 058
     Dates: start: 20080801
  13. PLAVIX [Concomitant]
  14. ALL OTHER THERAPEUTIC PRODUCTS [Concomitant]
  15. ACETYLSALICYLIC ACID [Concomitant]

REACTIONS (4)
  - ARRHYTHMIA [None]
  - OEDEMA PERIPHERAL [None]
  - CARDIAC FAILURE CONGESTIVE [None]
  - FATIGUE [None]
